FAERS Safety Report 10219042 (Version 1)
Quarter: 2014Q2

REPORT INFORMATION
  Report Type: Spontaneous
  Country: US (occurrence: US)
  Receive Date: 20140605
  Receipt Date: 20140605
  Transmission Date: 20141212
  Serious: No
  Sender: FDA-Public Use
  Company Number: US-PFIZER INC-2014150851

PATIENT
  Sex: Female

DRUGS (1)
  1. LYRICA [Suspect]
     Indication: NERVE INJURY
     Dosage: 75 MG, UNK

REACTIONS (7)
  - Withdrawal syndrome [Unknown]
  - Vision blurred [Unknown]
  - Blood pressure decreased [Unknown]
  - Dizziness [Unknown]
  - Confusional state [Unknown]
  - Restlessness [Unknown]
  - Anxiety [Unknown]
